FAERS Safety Report 23013466 (Version 2)
Quarter: 2023Q4

REPORT INFORMATION
  Report Type: Report from Study
  Country: US (occurrence: US)
  Receive Date: 20231001
  Receipt Date: 20231009
  Transmission Date: 20240109
  Serious: Yes (Hospitalization)
  Sender: FDA-Public Use
  Company Number: US-JNJFOC-20230947255

PATIENT
  Age: 76 Year
  Sex: Female
  Weight: 60 kg

DRUGS (5)
  1. SELEXIPAG [Suspect]
     Active Substance: SELEXIPAG
     Indication: Pulmonary hypertension
     Route: 048
  2. SELEXIPAG [Suspect]
     Active Substance: SELEXIPAG
     Route: 048
  3. REMODULIN [Suspect]
     Active Substance: TREPROSTINIL
     Indication: Product used for unknown indication
     Route: 065
  4. OPSUMIT [Concomitant]
     Active Substance: MACITENTAN
  5. REVATIO [Concomitant]
     Active Substance: SILDENAFIL CITRATE

REACTIONS (3)
  - Pulmonary arterial hypertension [Unknown]
  - Presyncope [Unknown]
  - Injection site pain [Unknown]

NARRATIVE: CASE EVENT DATE: 20230912
